FAERS Safety Report 5742416-7 (Version None)
Quarter: 2008Q2

REPORT INFORMATION
  Report Type: 
  Country: None (occurrence: None)
  Receive Date: 20080514
  Receipt Date: 20080514
  Transmission Date: 20081010
  Serious: No
  Sender: FDA-Public Use
  Company Number: None

PATIENT
  Age: 55 Year
  Sex: Male
  Weight: 122.7 kg

DRUGS (1)
  1. FLUCONAZOLE [Suspect]
     Indication: CANDIDIASIS
     Dates: start: 20080401, end: 20080402

REACTIONS (4)
  - ANGIOEDEMA [None]
  - ERYTHEMA [None]
  - SWOLLEN TONGUE [None]
  - URTICARIA [None]
